FAERS Safety Report 11659101 (Version 1)
Quarter: 2015Q4

REPORT INFORMATION
  Report Type: Spontaneous
  Country: None (occurrence: None)
  Receive Date: 20151023
  Receipt Date: 20151023
  Transmission Date: 20160304
  Serious: No
  Sender: FDA-Public Use
  Company Number: None

PATIENT

DRUGS (1)
  1. ACYCLOVIR. [Suspect]
     Active Substance: ACYCLOVIR
     Indication: HERPES VIRUS INFECTION
     Dosage: 1 PILL 5 TIMES DAILY TAKEN BY MOUTH
     Route: 048
     Dates: start: 20151020

REACTIONS (2)
  - Product label issue [None]
  - Drug dispensing error [None]

NARRATIVE: CASE EVENT DATE: 20150911
